FAERS Safety Report 21828810 (Version 1)
Quarter: 2023Q1

REPORT INFORMATION
  Report Type: Spontaneous
  Country: US (occurrence: None)
  Receive Date: 20230105
  Receipt Date: 20230105
  Transmission Date: 20230418
  Serious: Yes (Hospitalization)
  Sender: FDA-Public Use
  Company Number: None

PATIENT
  Sex: Female

DRUGS (1)
  1. ONDANSETRON HYDROCHLORIDE [Suspect]
     Active Substance: ONDANSETRON HYDROCHLORIDE
     Dosage: OTHER FREQUENCY : OTHER;?
     Route: 042

REACTIONS (5)
  - Flushing [None]
  - Feeling hot [None]
  - Nausea [None]
  - Loss of consciousness [None]
  - Infusion related reaction [None]
